FAERS Safety Report 4718079-6 (Version None)
Quarter: 2005Q3

REPORT INFORMATION
  Report Type: 
  Country: None (occurrence: None)
  Receive Date: 20050718
  Receipt Date: 20050418
  Transmission Date: 20060218
  Serious: No
  Sender: FDA-Public Use
  Company Number: 2005000756

PATIENT
  Sex: Female
  Weight: 99.7913 kg

DRUGS (3)
  1. TARCEVA [Suspect]
     Indication: NON-SMALL CELL LUNG CANCER
     Dosage: 150 MG (QD), ORAL
     Route: 048
     Dates: start: 20050316
  2. ATENOLOL [Concomitant]
  3. OGEN (GENERIC) (ESTROPIPATE) [Concomitant]

REACTIONS (5)
  - DIARRHOEA [None]
  - DRY SKIN [None]
  - ERYTHEMA [None]
  - PRURITUS [None]
  - VOMITING [None]
